FAERS Safety Report 8933541 (Version 1)
Quarter: 2012Q4

REPORT INFORMATION
  Report Type: 
  Country: US (occurrence: US)
  Receive Date: 20121129
  Receipt Date: 20121129
  Transmission Date: 20130627
  Serious: No
  Sender: FDA-Public Use
  Company Number: US-PFIZER INC-2012298087

PATIENT

DRUGS (1)
  1. NICOTROL INHALER [Suspect]
     Dosage: UNK
     Route: 055

REACTIONS (2)
  - Product taste abnormal [Unknown]
  - Drug ineffective [Unknown]
